FAERS Safety Report 8075885-0 (Version None)
Quarter: 2012Q1

REPORT INFORMATION
  Report Type: 
  Country: None (occurrence: None)
  Receive Date: 20120127
  Receipt Date: 20120123
  Transmission Date: 20120608
  Serious: No
  Sender: FDA-Public Use
  Company Number: ES-ASTRAZENECA-2012SE02624

PATIENT
  Sex: Female
  Weight: 54 kg

DRUGS (6)
  1. SIMVASTATIN [Concomitant]
     Indication: DYSLIPIDAEMIA
     Dosage: 3 TABLETS PER WEEK
     Route: 048
  2. GLICLAZIDE [Concomitant]
     Indication: DIABETES MELLITUS
     Route: 048
  3. VANDETANIB [Suspect]
     Indication: THYROID CANCER
     Route: 048
     Dates: start: 20111104, end: 20111215
  4. LEVOTHYROXINE SODIUM [Suspect]
     Indication: HYPOTHYROIDISM
     Route: 048
  5. HYDROCHLOROTHIAZIDE [Concomitant]
     Indication: HYPERTENSION
     Route: 048
  6. CALCIUM CARBONATE [Concomitant]
     Indication: OSTEOPOROSIS
     Route: 048

REACTIONS (2)
  - TOXIC SKIN ERUPTION [None]
  - SKIN TOXICITY [None]
